FAERS Safety Report 9278706 (Version 4)
Quarter: 2013Q4

REPORT INFORMATION
  Report Type: Report from Study
  Country: BE (occurrence: BE)
  Receive Date: 20130508
  Receipt Date: 20131021
  Transmission Date: 20140711
  Serious: Yes (Hospitalization)
  Sender: FDA-Public Use
  Company Number: BE-TEVA-344621ISR

PATIENT
  Age: 66 Year
  Sex: Female

DRUGS (58)
  1. FLUOROURACIL [Suspect]
     Indication: METASTATIC GASTRIC CANCER
     Dosage: 5811 MILLIGRAM DAILY;
     Route: 041
     Dates: start: 20120305, end: 20120310
  2. FLUOROURACIL [Suspect]
     Dosage: 4272 MILLIGRAM DAILY;
     Route: 041
     Dates: start: 20120326
  3. CISPLATIN (CDDP) [Suspect]
     Indication: METASTATIC GASTRIC CANCER
     Dosage: 116 MILLIGRAM DAILY;
     Route: 041
     Dates: start: 20120305, end: 20120305
  4. CISPLATIN (CDDP) [Suspect]
     Dosage: 85 MILLIGRAM DAILY;
     Route: 041
     Dates: start: 20120326
  5. EMCONCOR [Concomitant]
     Indication: PROPHYLAXIS
     Dates: start: 20120322, end: 20120328
  6. MS CONTIN [Concomitant]
     Indication: PAIN
     Dates: start: 20120316
  7. MS CONTIN [Concomitant]
     Dates: start: 20120402
  8. ATACAND [Concomitant]
     Indication: HYPERTENSION
     Dates: start: 20050525
  9. ATACAND [Concomitant]
     Dates: start: 20120402
  10. ORTHO-GYNEST [Concomitant]
     Indication: OOPHORECTOMY
     Dates: start: 20110307
  11. ORTHO-GYNEST [Concomitant]
     Dates: start: 20120402
  12. BAREXAL [Concomitant]
     Indication: DIARRHOEA
     Dates: start: 20120305
  13. BAREXAL [Concomitant]
     Dates: start: 20120411
  14. DAFALGAN [Concomitant]
     Indication: HEADACHE
     Dates: start: 20120328
  15. DAFALGAN [Concomitant]
     Indication: PAIN
     Dates: start: 20120402
  16. DAFALGAN [Concomitant]
     Indication: PYREXIA
  17. IMODIUM [Concomitant]
     Indication: DIARRHOEA
     Dates: start: 20120312
  18. IMODIUM [Concomitant]
     Dates: start: 20120402
  19. MOTILIUM [Concomitant]
     Indication: NAUSEA
     Dates: start: 20120311
  20. MOTILIUM [Concomitant]
     Dates: start: 20120402
  21. OLAMINE (PIROCTONE ETHANOLAMINE) [Concomitant]
     Indication: VITAMIN SUPPLEMENTATION
     Dates: start: 20101208
  22. NEUROBION [Concomitant]
     Indication: GASTRECTOMY
     Dates: start: 20100330
  23. BICARBONATE BUCCAL [Concomitant]
     Indication: STOMATITIS
     Route: 002
     Dates: start: 20120313
  24. BICARBONATE BUCCAL [Concomitant]
     Route: 002
     Dates: start: 20120402
  25. MOVICOL [Concomitant]
     Indication: CONSTIPATION PROPHYLAXIS
     Dates: start: 20120313
  26. LITICAN [Concomitant]
     Indication: NAUSEA
     Dates: start: 20120311
  27. LITICAN [Concomitant]
     Dates: start: 20120402
  28. PRIMPERAN [Concomitant]
     Indication: NAUSEA
     Dates: start: 20120316
  29. SYNGEL [Concomitant]
     Indication: PROPHYLAXIS
     Dates: start: 20120315, end: 20120328
  30. SYNGEL [Concomitant]
     Dates: start: 20120402
  31. PRESERVISION (OCUVITE LUTEINE) [Concomitant]
     Indication: VITAMIN SUPPLEMENTATION
     Dates: start: 20101001
  32. SOFTENE [Concomitant]
     Indication: CONSTIPATION PROPHYLAXIS
     Dates: start: 20120315
  33. MS DIRECT [Concomitant]
     Indication: PAIN
     Dates: start: 20120313
  34. MS DIRECT [Concomitant]
     Dates: start: 20120402
  35. POTASSIUM CHLORIDE [Concomitant]
     Indication: HYPOKALAEMIA
     Route: 042
     Dates: start: 20120402, end: 20120404
  36. POTASSIUM CHLORIDE [Concomitant]
     Route: 042
     Dates: start: 20120411, end: 20120412
  37. XYLOCAINE GEL BUCCAL [Concomitant]
     Indication: MUCOSAL INFLAMMATION
     Route: 048
     Dates: start: 20120402, end: 20120407
  38. BLOOD TRANSFUSION [Concomitant]
     Indication: ANAEMIA
     Dates: start: 20120320, end: 20120321
  39. MAGNESIUM SULPHATE [Concomitant]
     Indication: HYPOMAGNESAEMIA
     Dates: start: 20120323, end: 20120327
  40. KALEORID [Concomitant]
     Indication: HYPOKALAEMIA
     Dates: start: 20120317, end: 20120323
  41. ZINNAT [Concomitant]
     Indication: BRONCHITIS
     Dates: start: 20120531, end: 20120603
  42. TAZOCIN [Concomitant]
     Indication: FEBRILE NEUTROPENIA
     Dates: start: 20120318, end: 20120326
  43. TAZOCIN [Concomitant]
     Dates: start: 20120411, end: 20120413
  44. ENTEROL [Concomitant]
     Indication: DIARRHOEA
     Dates: start: 2012
  45. EMEND [Concomitant]
     Indication: PROPHYLAXIS OF NAUSEA AND VOMITING
     Dates: start: 20120305, end: 20120601
  46. ONDANSETRON [Concomitant]
     Indication: PROPHYLAXIS OF NAUSEA AND VOMITING
     Dates: start: 20120305, end: 20120531
  47. DEXAMETHASONE [Concomitant]
     Indication: PROPHYLAXIS
     Dates: start: 20120305, end: 20120531
  48. MEDROL [Concomitant]
     Indication: PROPHYLAXIS
     Dates: start: 20120305
  49. DIFLUCAN [Concomitant]
     Indication: PROPHYLAXIS
     Dates: start: 20120312, end: 20120322
  50. AMLOR [Concomitant]
     Indication: PROPHYLAXIS
     Dates: start: 20120313, end: 20120321
  51. CHLOROPOTASSURIL [Concomitant]
     Indication: HYPOKALAEMIA
     Dates: start: 20120402, end: 20120402
  52. NEXIAM [Concomitant]
     Indication: PAIN
     Dates: start: 20120402, end: 20120405
  53. PARACETAMOL [Concomitant]
     Indication: DENTAL DISORDER PROPHYLAXIS
     Dates: start: 20120402, end: 20120407
  54. NACL (SODIUM CHLORIDE) [Concomitant]
     Indication: HYPONATRAEMIA
     Dates: start: 20120402, end: 20120405
  55. FRAXIPARINE [Concomitant]
     Indication: THROMBOSIS PROPHYLAXIS
     Dates: start: 20120405, end: 20120406
  56. PANTOMED [Concomitant]
     Indication: DYSPEPSIA
     Dates: start: 20120406
  57. PANTOMED [Concomitant]
     Indication: NAUSEA
  58. ISOSOURCE  ENERGY [Concomitant]
     Indication: DECREASED APPETITE
     Dates: start: 20120327, end: 20120327

REACTIONS (4)
  - Dehydration [Recovered/Resolved]
  - Hypokalaemia [Recovered/Resolved]
  - Diarrhoea [Unknown]
  - Mucosal inflammation [Unknown]
